FAERS Safety Report 17516125 (Version 1)
Quarter: 2020Q1

REPORT INFORMATION
  Report Type: Spontaneous
  Country: US (occurrence: US)
  Receive Date: 20200307
  Receipt Date: 20200307
  Transmission Date: 20200409
  Serious: No
  Sender: FDA-Public Use
  Company Number: None

PATIENT
  Age: 54 Year
  Sex: Female
  Weight: 81 kg

DRUGS (1)
  1. HEAD AND SHOULDERS 2IN1 INSTANT RELIEF [Suspect]
     Active Substance: PYRITHIONE ZINC
     Indication: PERSONAL HYGIENE
     Route: 061
     Dates: start: 20200306, end: 20200306

REACTIONS (1)
  - Rash [None]

NARRATIVE: CASE EVENT DATE: 20200306
